FAERS Safety Report 24172704 (Version 1)
Quarter: 2024Q3

REPORT INFORMATION
  Report Type: Report from Study
  Country: US (occurrence: US)
  Receive Date: 20240805
  Receipt Date: 20240805
  Transmission Date: 20241017
  Serious: Yes (Other)
  Sender: GILEAD
  Company Number: US-GILEAD-2024-0677555

PATIENT
  Age: 58 Year
  Sex: Female

DRUGS (4)
  1. AMBRISENTAN [Suspect]
     Active Substance: AMBRISENTAN
     Indication: Pulmonary arterial hypertension
     Dosage: 10 MG, QD
     Route: 065
     Dates: start: 202404
  2. UPTRAVI [Suspect]
     Active Substance: SELEXIPAG
     Indication: Pulmonary arterial hypertension
     Dosage: 1600 UG, BID
     Route: 065
     Dates: start: 202107
  3. UPTRAVI [Suspect]
     Active Substance: SELEXIPAG
     Dosage: 1600 UG, BID
     Route: 065
     Dates: start: 202404
  4. TADALAFIL [Concomitant]
     Active Substance: TADALAFIL

REACTIONS (18)
  - Syncope [Not Recovered/Not Resolved]
  - Eye irritation [Recovered/Resolved]
  - Back pain [Unknown]
  - Pain in extremity [Not Recovered/Not Resolved]
  - Somnolence [Not Recovered/Not Resolved]
  - Diarrhoea [Not Recovered/Not Resolved]
  - Pain [Not Recovered/Not Resolved]
  - Infusion site pain [Not Recovered/Not Resolved]
  - Anxiety [Unknown]
  - Depression [Unknown]
  - Chest pain [Not Recovered/Not Resolved]
  - Peripheral swelling [Not Recovered/Not Resolved]
  - Weight fluctuation [Not Recovered/Not Resolved]
  - Joint swelling [Not Recovered/Not Resolved]
  - Fatigue [Not Recovered/Not Resolved]
  - Headache [Not Recovered/Not Resolved]
  - Dizziness [Not Recovered/Not Resolved]
  - Oedema peripheral [Unknown]
